FAERS Safety Report 5063641-7 (Version None)
Quarter: 2006Q3

REPORT INFORMATION
  Report Type: 
  Country: None (occurrence: None)
  Receive Date: 20060727
  Receipt Date: 20060711
  Transmission Date: 20061208
  Serious: Yes (Other)
  Sender: FDA-Public Use
  Company Number: DE-SANOFI-SYNTHELABO-A04200600694

PATIENT
  Sex: Female

DRUGS (4)
  1. QUENSYL [Suspect]
     Indication: SYSTEMIC LUPUS ERYTHEMATOSUS
     Route: 048
  2. QUENSYL [Suspect]
     Indication: AUTOIMMUNE DISORDER
     Route: 048
  3. OXYGESIC [Concomitant]
     Indication: PAIN
     Dosage: UNK
     Route: 048
  4. URBASON [Concomitant]
     Indication: RHEUMATOID ARTHRITIS
     Dosage: 40 MG
     Route: 048

REACTIONS (3)
  - EYE PAIN [None]
  - PHOTOPHOBIA [None]
  - VISION BLURRED [None]
